FAERS Safety Report 11104986 (Version 2)
Quarter: 2015Q2

REPORT INFORMATION
  Report Type: Spontaneous
  Country: US (occurrence: US)
  Receive Date: 20150511
  Receipt Date: 20150608
  Transmission Date: 20150821
  Serious: Yes (Other)
  Sender: FDA-Public Use
  Company Number: US-JAZZ-2015-US-006503

PATIENT
  Sex: Male
  Weight: 99.77 kg

DRUGS (29)
  1. XYREM [Suspect]
     Active Substance: SODIUM OXYBATE
     Dosage: 3 G, BID
     Route: 048
     Dates: start: 200803, end: 2008
  2. LIDODERM [Concomitant]
     Active Substance: LIDOCAINE
     Indication: PAIN
  3. MODAFINIL. [Concomitant]
     Active Substance: MODAFINIL
     Indication: FATIGUE
     Dosage: 200 MG, QD
     Route: 048
     Dates: start: 20150109
  4. DULOXETINE [Concomitant]
     Active Substance: DULOXETINE
     Indication: FIBROMYALGIA
  5. MELATONIN [Concomitant]
     Active Substance: MELATONIN
     Indication: PRODUCT USED FOR UNKNOWN INDICATION
     Dosage: 1 MG, NIGHTLY AT BEDTIME
  6. PREVACID [Concomitant]
     Active Substance: LANSOPRAZOLE
     Indication: HIATUS HERNIA
  7. DULOXETINE [Concomitant]
     Active Substance: DULOXETINE
     Indication: DEPRESSION
     Dosage: 30 MG, QD
  8. LAMISIL AT [Concomitant]
     Active Substance: TERBINAFINE HYDROCHLORIDE
     Indication: PRODUCT USED FOR UNKNOWN INDICATION
     Dosage: UNK
     Dates: start: 20150109
  9. TRICOR [Concomitant]
     Active Substance: FENOFIBRATE
     Indication: PRODUCT USED FOR UNKNOWN INDICATION
     Dosage: UNK
  10. ADDERALL [Concomitant]
     Active Substance: AMPHETAMINE ASPARTATE\AMPHETAMINE SULFATE\DEXTROAMPHETAMINE SACCHARATE\DEXTROAMPHETAMINE SULFATE
     Indication: FATIGUE
     Dosage: 15 MG, DAILY IN MORNING
     Route: 048
  11. HYDROCORTISONE BUTYRATE. [Concomitant]
     Active Substance: HYDROCORTISONE BUTYRATE
     Indication: PRODUCT USED FOR UNKNOWN INDICATION
     Dosage: UNK
     Dates: start: 20150109
  12. PREVACID [Concomitant]
     Active Substance: LANSOPRAZOLE
     Indication: BARRETT^S OESOPHAGUS
  13. LIDODERM [Concomitant]
     Active Substance: LIDOCAINE
     Indication: FIBROMYALGIA
     Dosage: UNK, PRN
     Dates: start: 20150109
  14. PRISTIQ EXTENDED RELEASE [Concomitant]
     Active Substance: DESVENLAFAXINE SUCCINATE
     Indication: PRODUCT USED FOR UNKNOWN INDICATION
     Dosage: UNK
     Route: 048
     Dates: start: 20150109
  15. CORTIZONE 10 [Concomitant]
     Active Substance: HYDROCORTISONE
     Indication: PRODUCT USED FOR UNKNOWN INDICATION
     Dosage: UNK
  16. DULOXETINE [Concomitant]
     Active Substance: DULOXETINE
     Indication: PAIN
  17. ADDERALL [Concomitant]
     Active Substance: AMPHETAMINE ASPARTATE\AMPHETAMINE SULFATE\DEXTROAMPHETAMINE SACCHARATE\DEXTROAMPHETAMINE SULFATE
     Indication: FIBROMYALGIA
  18. ADDERALL [Concomitant]
     Active Substance: AMPHETAMINE ASPARTATE\AMPHETAMINE SULFATE\DEXTROAMPHETAMINE SACCHARATE\DEXTROAMPHETAMINE SULFATE
     Indication: FIBROMYALGIA
  19. LIDODERM [Concomitant]
     Active Substance: LIDOCAINE
     Indication: MUSCLE SPASMS
  20. MODAFINIL. [Concomitant]
     Active Substance: MODAFINIL
     Indication: FIBROMYALGIA
  21. ADDERALL [Concomitant]
     Active Substance: AMPHETAMINE ASPARTATE\AMPHETAMINE SULFATE\DEXTROAMPHETAMINE SACCHARATE\DEXTROAMPHETAMINE SULFATE
     Indication: FATIGUE
     Dosage: UNK
     Route: 048
     Dates: start: 20150109
  22. DOCQLACE [Concomitant]
     Active Substance: DOCUSATE SODIUM
     Indication: CONSTIPATION PROPHYLAXIS
     Dosage: 100 MG, QD
     Route: 048
     Dates: start: 20150109
  23. XYZAL [Concomitant]
     Active Substance: LEVOCETIRIZINE DIHYDROCHLORIDE
     Indication: HYPERSENSITIVITY
     Dosage: UNK, PRN
     Route: 048
     Dates: start: 20150109
  24. LAMICTAL [Concomitant]
     Active Substance: LAMOTRIGINE
     Indication: PRODUCT USED FOR UNKNOWN INDICATION
     Dosage: UNK
  25. XYREM [Suspect]
     Active Substance: SODIUM OXYBATE
     Indication: FIBROMYALGIA
     Dosage: 1.5 G, BID
     Route: 048
     Dates: start: 200802, end: 2008
  26. XYREM [Suspect]
     Active Substance: SODIUM OXYBATE
     Dosage: 4.5 G, BID
     Route: 048
     Dates: start: 200804
  27. MINOCYCLINE [Concomitant]
     Active Substance: MINOCYCLINE\MINOCYCLINE HYDROCHLORIDE
     Indication: PRODUCT USED FOR UNKNOWN INDICATION
     Dosage: UNK
  28. PREVACID [Concomitant]
     Active Substance: LANSOPRAZOLE
     Indication: GASTROOESOPHAGEAL REFLUX DISEASE
     Dosage: 30 MG, QD
     Route: 048
     Dates: start: 20150109
  29. ALPROZOLAM [Concomitant]
     Active Substance: ALPRAZOLAM
     Indication: PRODUCT USED FOR UNKNOWN INDICATION
     Dosage: UNK
     Route: 048
     Dates: start: 20130115

REACTIONS (6)
  - Barrett^s oesophagus [Not Recovered/Not Resolved]
  - Diabetes mellitus [Not Recovered/Not Resolved]
  - Vitamin B12 deficiency [Recovering/Resolving]
  - Hiatus hernia [Not Recovered/Not Resolved]
  - Vitamin D deficiency [Recovering/Resolving]
  - Blood cholesterol increased [Not Recovered/Not Resolved]
